FAERS Safety Report 17236068 (Version 1)
Quarter: 2020Q1

REPORT INFORMATION
  Report Type: Spontaneous
  Country: CH (occurrence: CH)
  Receive Date: 20200106
  Receipt Date: 20200106
  Transmission Date: 20200409
  Serious: Yes (Other)
  Sender: FDA-Public Use
  Company Number: CH-TEVA-2020-CH-1164077

PATIENT
  Age: 69 Year
  Sex: Female

DRUGS (26)
  1. PEMETREXED. [Concomitant]
     Active Substance: PEMETREXED
     Dates: start: 20191113, end: 20191113
  2. LAXOBERON [Concomitant]
     Active Substance: SODIUM PICOSULFATE
  3. PURSANA [Concomitant]
     Active Substance: FIG FRUIT OIL\SORBITOL
  4. CO-AMOXI [Suspect]
     Active Substance: AMOXICILLIN\CLAVULANATE POTASSIUM
     Route: 042
     Dates: start: 20191116, end: 20191117
  5. PIPERACILLIN AND TAZOBACTAM [Suspect]
     Active Substance: PIPERACILLIN SODIUM\TAZOBACTAM SODIUM
     Route: 042
     Dates: start: 20191117, end: 20191121
  6. TIENAM [Concomitant]
     Active Substance: CILASTATIN SODIUM\IMIPENEM
     Dates: start: 20191122
  7. VITARUBIN [Concomitant]
     Active Substance: CYANOCOBALAMIN
  8. PASPERTIN [Concomitant]
     Dosage: AS NECESSARY
  9. PEMBROLIZUMAB. [Concomitant]
     Active Substance: PEMBROLIZUMAB
     Dates: start: 20191113, end: 20191113
  10. MORPHINE [Concomitant]
     Active Substance: MORPHINE
     Dosage: AS NECESSARY
  11. ONDANSETRON [Concomitant]
     Active Substance: ONDANSETRON
     Dosage: AS NECESSARY
  12. CLEXANE [Concomitant]
     Active Substance: ENOXAPARIN SODIUM
     Dates: start: 20191117, end: 20191125
  13. IPRAMOL [Concomitant]
     Active Substance: ALBUTEROL SULFATE\IPRATROPIUM BROMIDE
  14. TARGIN [Concomitant]
     Active Substance: NALOXONE HYDROCHLORIDE\OXYCODONE HYDROCHLORIDE
  15. CARBOPLATINE [Concomitant]
     Active Substance: CARBOPLATIN
     Dates: start: 20191113, end: 20191113
  16. NEXIUM MUPS [Concomitant]
     Active Substance: ESOMEPRAZOLE
  17. OXYNORM [Concomitant]
     Active Substance: OXYCODONE HYDROCHLORIDE
     Dosage: AS NECESSARY
  18. DAFALGAN [Concomitant]
     Active Substance: ACETAMINOPHEN
     Dosage: AS NECESSARY
  19. CLARITHROMYCIN. [Suspect]
     Active Substance: CLARITHROMYCIN
     Route: 048
     Dates: start: 20191117, end: 20191119
  20. FOLIC ACID. [Concomitant]
     Active Substance: FOLIC ACID
  21. REMERON [Concomitant]
     Active Substance: MIRTAZAPINE
  22. SCHERIPROCT [Concomitant]
     Active Substance: DIBUCAINE HYDROCHLORIDE\PREDNISOLONE
  23. CLYSSIE [Concomitant]
     Dosage: AS NECESSARY
  24. LASIX [Concomitant]
     Active Substance: FUROSEMIDE
  25. RIVOTRIL [Concomitant]
     Active Substance: CLONAZEPAM
  26. LUVIT D3 [Concomitant]
     Active Substance: CHOLECALCIFEROL

REACTIONS (1)
  - Rash maculo-papular [Recovered/Resolved]

NARRATIVE: CASE EVENT DATE: 20191122
